FAERS Safety Report 19455235 (Version 1)
Quarter: 2021Q2

REPORT INFORMATION
  Report Type: Other
  Country: US (occurrence: US)
  Receive Date: 20210623
  Receipt Date: 20210623
  Transmission Date: 20210717
  Serious: Yes (Other)
  Sender: FDA-Public Use
  Company Number: US-ROCHE-2743184

PATIENT
  Age: 52 Year
  Sex: Female

DRUGS (8)
  1. ANTITHYMOCYTE IMMUNOGLOBULIN [Concomitant]
     Active Substance: THYMOCYTE IMMUNE GLOBULIN NOS
  2. TACROLIMUS. [Concomitant]
     Active Substance: TACROLIMUS
     Indication: IMMUNOSUPPRESSION
  3. MYCOPHENOLATE [Concomitant]
     Active Substance: MYCOPHENOLIC ACID
     Indication: IMMUNOSUPPRESSION
  4. PREDNISONE. [Concomitant]
     Active Substance: PREDNISONE
     Indication: IMMUNOSUPPRESSION
  5. CYCLOSPORINE. [Concomitant]
     Active Substance: CYCLOSPORINE
  6. VALGANCICLOVIR. [Suspect]
     Active Substance: VALGANCICLOVIR
     Indication: CYTOMEGALOVIRUS VIRAEMIA
     Route: 065
  7. METHYLPREDNISOLONE. [Concomitant]
     Active Substance: METHYLPREDNISOLONE
  8. IMMUNOGLOBULIN HUMAN NORMAL [Concomitant]
     Active Substance: HUMAN IMMUNOGLOBULIN G
     Route: 042

REACTIONS (1)
  - Neutropenia [Recovered/Resolved]
